FAERS Safety Report 7465749-5 (Version None)
Quarter: 2011Q2

REPORT INFORMATION
  Report Type: 
  Country: None (occurrence: None)
  Receive Date: 20110509
  Receipt Date: 20110429
  Transmission Date: 20111010
  Serious: Yes (Death)
  Sender: FDA-Public Use
  Company Number: BR-MILLENNIUM PHARMACEUTICALS, INC.-2010-03084

PATIENT

DRUGS (7)
  1. ENALAPRIL [Concomitant]
     Dosage: UNK
     Route: 048
     Dates: end: 20091016
  2. CODEINE SULFATE [Concomitant]
     Dosage: UNK
     Route: 048
     Dates: start: 20091009, end: 20091016
  3. ACYCLOVIR [Concomitant]
     Dosage: UNK
     Route: 048
     Dates: start: 20090424, end: 20091016
  4. VELCADE [Suspect]
     Indication: MULTIPLE MYELOMA
     Dosage: 1.3 MG/M2, UNK
     Dates: start: 20090323, end: 20091013
  5. DEXAMETHASONE [Concomitant]
     Indication: MULTIPLE MYELOMA
     Dosage: 40 MG, UNK
     Route: 042
     Dates: start: 20090323, end: 20091013
  6. GLYBURIDE [Concomitant]
     Dosage: UNK
     Route: 048
     Dates: end: 20091016
  7. ZOLEDRONIC ACID [Concomitant]
     Indication: MULTIPLE MYELOMA
     Dosage: 4 MG, UNK
     Route: 042
     Dates: end: 20091013

REACTIONS (2)
  - DISEASE PROGRESSION [None]
  - CACHEXIA [None]
